FAERS Safety Report 10869168 (Version 1)
Quarter: 2015Q1

REPORT INFORMATION
  Report Type: Spontaneous
  Country: IT (occurrence: IT)
  Receive Date: 20150225
  Receipt Date: 20150225
  Transmission Date: 20150721
  Serious: Yes (Other)
  Sender: FDA-Public Use
  Company Number: IT-GILEAD-2015-0138839

PATIENT
  Age: 67 Year

DRUGS (7)
  1. SOVALDI [Suspect]
     Active Substance: SOFOSBUVIR
     Indication: CHRONIC HEPATITIS C
     Dosage: 1 DF, UNK
     Route: 065
     Dates: start: 20150124
  2. GLIBOMET [Concomitant]
     Active Substance: GLYBURIDE\METFORMIN HYDROCHLORIDE
  3. REBETOL [Suspect]
     Active Substance: RIBAVIRIN
     Indication: CHRONIC HEPATITIS C
     Dosage: 3 DF, UNK
     Route: 065
     Dates: start: 20150124
  4. TORADIUR                           /01036501/ [Concomitant]
  5. LOBIVON [Concomitant]
     Active Substance: NEBIVOLOL HYDROCHLORIDE
  6. REBETOL [Suspect]
     Active Substance: RIBAVIRIN
     Dosage: 2 DF, QD
     Route: 065
  7. TAREG [Concomitant]
     Active Substance: VALSARTAN

REACTIONS (5)
  - Extrasystoles [Unknown]
  - Flatulence [Unknown]
  - Insomnia [Unknown]
  - Tachycardia [Unknown]
  - Abdominal pain [Unknown]

NARRATIVE: CASE EVENT DATE: 20150130
